FAERS Safety Report 4607907-0 (Version None)
Quarter: 2005Q1

REPORT INFORMATION
  Report Type: 
  Country: None (occurrence: None)
  Receive Date: 20050310
  Receipt Date: 20050224
  Transmission Date: 20050727
  Serious: Yes (Other)
  Sender: FDA-Public Use
  Company Number: 212685

PATIENT
  Age: 29 Year
  Sex: Female
  Weight: 61.5 kg

DRUGS (6)
  1. MABTHERA (RITUXIMAB) CONC FOR SOLUTION FOR INFUSION, 500MG [Suspect]
     Indication: RHEUMATOID ARTHRITIS
     Dosage: 1 G, Q2W, INTRAVENOUS
     Route: 042
     Dates: start: 20041209, end: 20041222
  2. METHOTREXATE [Concomitant]
  3. PREDNISONE [Concomitant]
  4. SULFASALAZINE [Concomitant]
  5. DICLOFENAC SODIUM [Concomitant]
  6. FOLIC ACID [Concomitant]

REACTIONS (2)
  - ABORTION SPONTANEOUS [None]
  - DRUG EXPOSURE DURING PREGNANCY [None]
